FAERS Safety Report 5772831-7 (Version None)
Quarter: 2008Q2

REPORT INFORMATION
  Report Type: 
  Country: None (occurrence: None)
  Receive Date: 20080613
  Receipt Date: 20080605
  Transmission Date: 20081010
  Serious: Yes (Hospitalization, Other)
  Sender: FDA-Public Use
  Company Number: PT-PFIZER INC-2008035989

PATIENT
  Sex: Male

DRUGS (3)
  1. CHANTIX [Suspect]
     Indication: SMOKING CESSATION THERAPY
     Route: 048
     Dates: start: 20080208, end: 20080309
  2. FLUIMUCIL [Concomitant]
     Route: 048
  3. VALDISPERT [Concomitant]
     Route: 048

REACTIONS (4)
  - DRUG TOXICITY [None]
  - PAIN [None]
  - PRURITUS [None]
  - RASH [None]
